FAERS Safety Report 5486543-0 (Version None)
Quarter: 2007Q3

REPORT INFORMATION
  Report Type: 
  Country: None (occurrence: None)
  Receive Date: 20070919
  Receipt Date: 20070518
  Transmission Date: 20080115
  Serious: No
  Sender: FDA-Public Use
  Company Number: 2007RL000217

PATIENT
  Age: 71 Year
  Sex: Female

DRUGS (13)
  1. OMACOR [Suspect]
     Indication: BLOOD CHOLESTEROL INCREASED
     Dosage: 1 GM; BID; PO, 1 GM; QOD; PO
     Route: 048
     Dates: start: 20070101, end: 20070101
  2. OMACOR [Suspect]
     Indication: BLOOD TRIGLYCERIDES INCREASED
     Dosage: 1 GM; BID; PO, 1 GM; QOD; PO
     Route: 048
     Dates: start: 20070101, end: 20070101
  3. OMACOR [Suspect]
     Indication: BLOOD CHOLESTEROL INCREASED
     Dosage: 1 GM; BID; PO, 1 GM; QOD; PO
     Route: 048
     Dates: start: 20070101
  4. OMACOR [Suspect]
     Indication: BLOOD TRIGLYCERIDES INCREASED
     Dosage: 1 GM; BID; PO, 1 GM; QOD; PO
     Route: 048
     Dates: start: 20070101
  5. DIGITEK [Concomitant]
  6. PROPAFENONE HCL [Concomitant]
  7. PREDNISONE TAB [Concomitant]
  8. NIASPAN [Concomitant]
  9. WELCHOL [Concomitant]
  10. METOPROLOL TARTRATE [Concomitant]
  11. SYNTHROID [Concomitant]
  12. WARFARIN SODIUM [Concomitant]
  13. PROTONIX /01263201/ [Concomitant]

REACTIONS (3)
  - INTENTIONAL DRUG MISUSE [None]
  - NAUSEA [None]
  - STOMACH DISCOMFORT [None]
